FAERS Safety Report 8639554 (Version 3)
Quarter: 2013Q1

REPORT INFORMATION
  Report Type: Spontaneous
  Country: US (occurrence: US)
  Receive Date: 20120627
  Receipt Date: 20130130
  Transmission Date: 20140127
  Serious: Yes (Other)
  Sender: FDA-Public Use
  Company Number: US-JNJFOC-20120609133

PATIENT
  Age: 62 Year
  Sex: Female

DRUGS (2)
  1. USTEKINUMAB [Suspect]
     Indication: PRODUCT USED FOR UNKNOWN INDICATION
     Route: 058
  2. RADIATION THERAPY [Concomitant]
     Route: 065

REACTIONS (9)
  - Anaplastic large cell lymphoma T- and null-cell types [Unknown]
  - Metastases to meninges [Unknown]
  - Dermatitis psoriasiform [Unknown]
  - Confusional state [Unknown]
  - Paralysis [Recovered/Resolved]
  - Arthralgia [Unknown]
  - Skin mass [Recovered/Resolved]
  - Vision blurred [Unknown]
  - Drug ineffective [Unknown]
